FAERS Safety Report 6644545-2 (Version None)
Quarter: 2010Q1

REPORT INFORMATION
  Report Type: 
  Country: None (occurrence: None)
  Receive Date: 20100317
  Receipt Date: 20100302
  Transmission Date: 20100710
  Serious: Yes (Hospitalization)
  Sender: FDA-Public Use
  Company Number: 2010BI007957

PATIENT
  Sex: Female

DRUGS (7)
  1. ZEVALIN [Suspect]
     Indication: NON-HODGKIN'S LYMPHOMA
     Dosage: 960 MBQ; 1X;IV
     Route: 042
     Dates: start: 20081031, end: 20081031
  2. RITUXIMAB [Concomitant]
  3. CARMUSTINE [Concomitant]
  4. CYTOSINE [Concomitant]
  5. ARABINOSIDE [Concomitant]
  6. ETOPOSIDE [Concomitant]
  7. MELPHALAN HYDROCHLORIDE [Concomitant]

REACTIONS (4)
  - ANAEMIA [None]
  - NEUTROPENIA [None]
  - STOMATITIS [None]
  - THROMBOCYTOPENIA [None]
